FAERS Safety Report 21680109 (Version 3)
Quarter: 2023Q1

REPORT INFORMATION
  Report Type: Spontaneous
  Country: US (occurrence: US)
  Receive Date: 20221205
  Receipt Date: 20230313
  Transmission Date: 20230418
  Serious: No
  Sender: FDA-Public Use
  Company Number: US-VIIV HEALTHCARE LIMITED-US2022AMR174765

PATIENT
  Age: 30 Year
  Sex: Male
  Weight: 196.13 kg

DRUGS (6)
  1. RILPIVIRINE [Suspect]
     Active Substance: RILPIVIRINE
     Indication: HIV infection
     Dosage: 6 ML, Z, Q2M
     Route: 030
     Dates: start: 20220322
  2. CABOTEGRAVIR [Suspect]
     Active Substance: CABOTEGRAVIR
     Indication: HIV infection
     Dosage: 6 ML, Z, Q2M
     Route: 030
     Dates: start: 20220322
  3. LISINOPRIL [Suspect]
     Active Substance: LISINOPRIL
     Indication: Hypertension
     Dosage: 40 MG
     Route: 065
     Dates: start: 20220923
  4. AMLODIPINE [Suspect]
     Active Substance: AMLODIPINE BESYLATE
     Indication: Hypertension
     Dosage: 10 MG
     Route: 065
     Dates: start: 20220112
  5. METFORMIN [Suspect]
     Active Substance: METFORMIN HYDROCHLORIDE
     Indication: Diabetes mellitus
     Dosage: 500 MG
     Route: 065
     Dates: start: 20221130
  6. HYDROCHLOROTHIAZIDE [Suspect]
     Active Substance: HYDROCHLOROTHIAZIDE
     Indication: Hypertension
     Dosage: 50 MG
     Route: 065
     Dates: start: 20220112

REACTIONS (3)
  - Injection site mass [Unknown]
  - Injection site haemorrhage [Recovered/Resolved]
  - Body fat disorder [Unknown]

NARRATIVE: CASE EVENT DATE: 20220322
